FAERS Safety Report 11106393 (Version 3)
Quarter: 2015Q2

REPORT INFORMATION
  Report Type: Spontaneous
  Country: US (occurrence: None)
  Receive Date: 20150508
  Receipt Date: 20150601
  Transmission Date: 20150821
  Serious: Yes (Other)
  Sender: FDA-Public Use
  Company Number: ADR-2015-00839

PATIENT
  Age: 68 Year
  Sex: Male

DRUGS (2)
  1. COMPOUNDED BACLOFEN INTRATHECAL- 154 MCG/DAY [Suspect]
     Active Substance: BACLOFEN
     Indication: PAIN
  2. MORPHINE INTRATHECAL 40MG/ML [Suspect]
     Active Substance: MORPHINE
     Indication: PAIN

REACTIONS (6)
  - Device power source issue [None]
  - Malaise [None]
  - Device issue [None]
  - Device material issue [None]
  - Drug withdrawal syndrome [None]
  - Formication [None]

NARRATIVE: CASE EVENT DATE: 20150421
